FAERS Safety Report 9929930 (Version 1)
Quarter: 2014Q1

REPORT INFORMATION
  Report Type: Spontaneous
  Country: US (occurrence: US)
  Receive Date: 20140227
  Receipt Date: 20140227
  Transmission Date: 20141002
  Serious: Yes (Other)
  Sender: FDA-Public Use
  Company Number: US-RB-063826-14

PATIENT
  Sex: Female

DRUGS (5)
  1. BUPRENORPHINE GENERIC [Suspect]
     Indication: DRUG DEPENDENCE
     Route: 060
     Dates: start: 20090101
  2. VALTREX [Concomitant]
     Indication: HERPES SIMPLEX
     Route: 065
     Dates: start: 20110101
  3. RANITIDINE [Concomitant]
     Indication: GASTROOESOPHAGEAL REFLUX DISEASE
     Route: 065
     Dates: start: 20110101
  4. GABAPENTIN [Concomitant]
     Indication: PAIN
     Route: 065
     Dates: start: 20130103
  5. GABAPENTIN [Concomitant]
     Indication: ANXIETY
     Route: 065
     Dates: start: 20130103

REACTIONS (2)
  - Maternal exposure during pregnancy [Recovered/Resolved]
  - Premature delivery [Recovered/Resolved]
